FAERS Safety Report 5805885-X (Version None)
Quarter: 2008Q3

REPORT INFORMATION
  Report Type: 
  Country: None (occurrence: None)
  Receive Date: 20080709
  Receipt Date: 20080709
  Transmission Date: 20090109
  Serious: Yes (Hospitalization)
  Sender: FDA-Public Use
  Company Number: None

PATIENT
  Age: 61 Year
  Sex: Male
  Weight: 104 kg

DRUGS (2)
  1. GEMFIBROZIL [Suspect]
     Indication: BLOOD CHOLESTEROL
     Dosage: 600MG BID PO
     Route: 048
  2. SIMVASTATIN [Suspect]
     Indication: BLOOD CHOLESTEROL
     Dosage: 40 MG EVERYDAY PO
     Route: 048

REACTIONS (8)
  - ABASIA [None]
  - ATRIOVENTRICULAR BLOCK COMPLETE [None]
  - DYSPNOEA EXERTIONAL [None]
  - GAIT DISTURBANCE [None]
  - OEDEMA PERIPHERAL [None]
  - ORTHOPNOEA [None]
  - RHABDOMYOLYSIS [None]
  - WEIGHT INCREASED [None]
